FAERS Safety Report 6758864-2 (Version None)
Quarter: 2010Q2

REPORT INFORMATION
  Report Type: 
  Country: None (occurrence: None)
  Receive Date: 20100607
  Receipt Date: 20100524
  Transmission Date: 20101027
  Serious: Yes (Hospitalization, Other)
  Sender: FDA-Public Use
  Company Number: PHHY2010US34108

PATIENT
  Sex: Female
  Weight: 78.9 kg

DRUGS (12)
  1. ERL 080A ERL+TAB [Suspect]
  2. AMITRIPTYLINE [Concomitant]
     Indication: DEPRESSION
     Dosage: 50 MG, QD
     Route: 048
  3. ARICEPT [Concomitant]
     Indication: DEMENTIA ALZHEIMER'S TYPE
     Dosage: 5 MG, QD
     Route: 048
  4. CALCIUM CARBONATE [Concomitant]
     Dosage: UNK
     Route: 048
  5. LEVOTHYROXINE SODIUM [Concomitant]
     Indication: HYPOTHYROIDISM
     Dosage: 25 MG, QD
     Route: 048
  6. METOPROLOL [Concomitant]
     Indication: HYPERTENSION
     Dosage: 50 MG, BID
     Route: 048
  7. OMEPRAZOLE [Concomitant]
     Indication: PROPHYLAXIS AGAINST GASTROINTESTINAL ULCER
     Dosage: 20 MG, QD
     Route: 048
  8. PREDNISONE [Concomitant]
     Indication: IMMUNOSUPPRESSION
     Dosage: 5 MG, QD
     Route: 048
  9. PROGRAF [Concomitant]
     Indication: IMMUNOSUPPRESSION
     Dosage: 5 MG, BID
     Route: 048
  10. ASPIRIN [Concomitant]
     Dosage: 81 MG, QD
     Route: 048
  11. AZATHIOPRINE [Concomitant]
     Indication: IMMUNOSUPPRESSION
     Dosage: 75 MG, QD
     Route: 048
  12. CITALOPRAM [Concomitant]
     Indication: DEPRESSION
     Dosage: 40 MG, QD
     Route: 048

REACTIONS (8)
  - ACUTE RESPIRATORY FAILURE [None]
  - ALTERED STATE OF CONSCIOUSNESS [None]
  - CARDIOMEGALY [None]
  - CHRONIC RESPIRATORY DISEASE [None]
  - COUGH [None]
  - ENDOTRACHEAL INTUBATION [None]
  - LOWER RESPIRATORY TRACT INFECTION [None]
  - UNRESPONSIVE TO STIMULI [None]
